FAERS Safety Report 15686119 (Version 2)
Quarter: 2018Q4

REPORT INFORMATION
  Report Type: Spontaneous
  Country: CN (occurrence: CN)
  Receive Date: 20181204
  Receipt Date: 20181204
  Transmission Date: 20190205
  Serious: Yes (Hospitalization, Other)
  Sender: FDA-Public Use
  Company Number: CN-UNITED THERAPEUTICS-UNT-2018-018887

PATIENT
  Age: 38 Year
  Sex: Male

DRUGS (3)
  1. REMODULIN [Suspect]
     Active Substance: TREPROSTINIL
     Indication: PULMONARY ARTERIAL PRESSURE DECREASED
  2. REMODULIN [Suspect]
     Active Substance: TREPROSTINIL
     Indication: PULMONARY HYPERTENSION
     Dosage: UNK
     Route: 058
     Dates: start: 2017, end: 20170521
  3. BOSENTAN. [Concomitant]
     Active Substance: BOSENTAN
     Indication: PULMONARY ARTERIAL PRESSURE DECREASED
     Route: 048

REACTIONS (9)
  - Infusion site haemorrhage [Unknown]
  - Off label use [Unknown]
  - Infusion site pain [Recovered/Resolved]
  - Hypotension [Unknown]
  - Delirium [Recovering/Resolving]
  - Headache [Unknown]
  - Diarrhoea [Unknown]
  - Restlessness [Recovering/Resolving]
  - Infusion site discharge [Unknown]

NARRATIVE: CASE EVENT DATE: 2017
